FAERS Safety Report 4402330-6 (Version None)
Quarter: 2004Q3

REPORT INFORMATION
  Report Type: 
  Country: None (occurrence: None)
  Receive Date: 20040713
  Receipt Date: 20040629
  Transmission Date: 20050211
  Serious: Yes (Other)
  Sender: FDA-Public Use
  Company Number: HQWYE508019APR04

PATIENT
  Age: 23 Year
  Sex: Male

DRUGS (1)
  1. BENEFIX [Suspect]
     Indication: DRUG USE FOR UNKNOWN INDICATION
     Dosage: 55 IU/KG (1510-4770 UNITS ON DEMAND); INTRAVENOUS
     Route: 042
     Dates: start: 20021112

REACTIONS (6)
  - DRUG INEFFECTIVE [None]
  - HAEMARTHROSIS [None]
  - INFUSION SITE PAIN [None]
  - INFUSION SITE PRURITUS [None]
  - INJURY [None]
  - SOFT TISSUE HAEMORRHAGE [None]
